FAERS Safety Report 4389382-7 (Version None)
Quarter: 2004Q2

REPORT INFORMATION
  Report Type: 
  Country: None (occurrence: None)
  Receive Date: 20040630
  Receipt Date: 20040621
  Transmission Date: 20050107
  Serious: Yes (Other)
  Sender: FDA-Public Use
  Company Number: 200410317BNE

PATIENT
  Sex: Female
  Weight: 68 kg

DRUGS (6)
  1. ADALAT [Suspect]
     Dosage: 10 MG, BID, ORAL
     Route: 048
     Dates: start: 20040316
  2. SALOFALK [Concomitant]
  3. FYBOGEL [Concomitant]
  4. COLOFAC [Concomitant]
  5. ZOPICLONE [Concomitant]
  6. NEXIUM [Concomitant]

REACTIONS (5)
  - BLISTER [None]
  - DYSPHAGIA [None]
  - GINGIVAL OEDEMA [None]
  - OESOPHAGEAL ULCER [None]
  - RASH [None]
